FAERS Safety Report 18228543 (Version 2)
Quarter: 2020Q3

REPORT INFORMATION
  Report Type: Report from Study
  Country: ES (occurrence: ES)
  Receive Date: 20200903
  Receipt Date: 20200916
  Transmission Date: 20201103
  Serious: Yes (Hospitalization)
  Sender: FDA-Public Use
  Company Number: ES-PFIZER INC-2020340192

PATIENT
  Age: 50 Year
  Sex: Male
  Weight: 108 kg

DRUGS (30)
  1. VANCOMYCIN [Concomitant]
     Active Substance: VANCOMYCIN
     Dosage: UNK, ONCE
     Route: 042
     Dates: start: 20200510, end: 20200510
  2. PARACETAMOL [Concomitant]
     Active Substance: ACETAMINOPHEN
     Dosage: UNK
  3. METAMIZOLE [Concomitant]
     Active Substance: METAMIZOLE
     Dosage: UNK, AS NEEDED (PRN)
     Route: 042
     Dates: start: 20200509, end: 20200509
  4. RED BLOOD CELLS [Concomitant]
     Active Substance: HUMAN RED BLOOD CELL
     Dosage: RBC TRANSFUSIONS
  5. CYCLOPHOSPHAMIDE. [Suspect]
     Active Substance: CYCLOPHOSPHAMIDE
     Indication: PLASMA CELL MYELOMA
     Dosage: 669 MG, DAILY (1 IN 1 DAY), INJECTION FOR INFUSION
     Route: 042
     Dates: start: 20200430, end: 20200502
  6. FUROSEMIDE. [Concomitant]
     Active Substance: FUROSEMIDE
     Indication: PROPHYLAXIS
     Dosage: 40 MG, DAILY (1 IN 1 D)
     Route: 048
     Dates: end: 202005
  7. MEROPENEM. [Concomitant]
     Active Substance: MEROPENEM
     Dosage: 3000 MG, 1 IN 8 HR
     Route: 042
     Dates: start: 20200509, end: 20200513
  8. FILGRASTIM [Concomitant]
     Active Substance: FILGRASTIM
     Indication: NEUTROPENIA
     Dosage: 400 MG, DAILY (1 IN 1 D)
     Route: 058
     Dates: start: 20200525, end: 20200525
  9. CALCIUM AND VITAMIN D [Concomitant]
     Active Substance: CALCIUM\VITAMIN D
     Indication: PROPHYLAXIS
     Dosage: 1 TAB, DAILY(1 IN 1 D)
     Route: 048
     Dates: end: 2020
  10. VANCOMYCIN [Concomitant]
     Active Substance: VANCOMYCIN
     Indication: CYTOKINE RELEASE SYNDROME
     Dosage: UNK, ONCE
     Route: 042
     Dates: start: 20200508, end: 20200508
  11. NYSTATIN. [Concomitant]
     Active Substance: NYSTATIN
     Indication: ANTIFUNGAL PROPHYLAXIS
     Dosage: 30 ML, 1 IN 8 HR
     Route: 048
     Dates: start: 20200509, end: 20200510
  12. PANTOPRAZOLE [Concomitant]
     Active Substance: PANTOPRAZOLE
     Indication: PROPHYLAXIS
     Dosage: 40 MG, DAILY (1 IN 1 D)
     Route: 048
     Dates: start: 20200507
  13. VANCOMYCIN [Concomitant]
     Active Substance: VANCOMYCIN
     Dosage: 400 MG, 1 IN 12 HR
     Route: 042
     Dates: start: 20200507, end: 20200509
  14. VANCOMYCIN [Concomitant]
     Active Substance: VANCOMYCIN
     Dosage: 400 MG, 2 IN 1 D
     Route: 042
     Dates: start: 20200510, end: 20200511
  15. FLUCONAZOLE. [Concomitant]
     Active Substance: FLUCONAZOLE
     Indication: ANTIFUNGAL PROPHYLAXIS
     Dosage: 200 MG, DAILY (1 IN 1 D)
     Route: 048
     Dates: start: 20200509, end: 20200510
  16. DEXCHLORPHENIRAMINE [Concomitant]
     Active Substance: DEXCHLORPHENIRAMINE
     Indication: PROPHYLAXIS
     Dosage: UNK, ONCE
     Route: 042
     Dates: start: 20200509, end: 20200509
  17. IBUPROFEN. [Concomitant]
     Active Substance: IBUPROFEN
     Indication: CYTOKINE RELEASE SYNDROME
     Dosage: UNK, AS NEEDED
     Route: 048
     Dates: start: 20200510, end: 20200510
  18. PLATELETS [Concomitant]
     Active Substance: HUMAN PLATELET, ALLOGENIC
     Dosage: PLATELET TRANSFUSIONS
  19. FLUDARABINE PHOSPHATE. [Suspect]
     Active Substance: FLUDARABINE PHOSPHATE
     Indication: PLASMA CELL MYELOMA
     Dosage: 66.95 MG, DAILY (1 IN 1 D),INJECTION FOR INFUSION
     Route: 042
     Dates: start: 20200430, end: 20200502
  20. LORAZEPAM. [Concomitant]
     Active Substance: LORAZEPAM
     Indication: INFECTION PROPHYLAXIS
     Dosage: 1 MG, DAILY (1 IN 1 D)
     Route: 048
     Dates: start: 20200504
  21. LEVOFLOXACIN. [Concomitant]
     Active Substance: LEVOFLOXACIN
     Indication: INFECTION PROPHYLAXIS
     Dosage: 500 MG, DAILY (1 IN 1D)
     Route: 048
     Dates: start: 20200514
  22. FILGRASTIM [Concomitant]
     Active Substance: FILGRASTIM
     Dosage: 400 MG, DAILY (1 IN 1 D)
     Route: 058
     Dates: start: 20200602, end: 20200604
  23. OMEPRAZOLE. [Concomitant]
     Active Substance: OMEPRAZOLE
     Indication: PROPHYLAXIS
     Dosage: 40 MG, DAILY (1 IN 1 D).
     Route: 048
  24. FUROSEMIDE. [Concomitant]
     Active Substance: FUROSEMIDE
     Dosage: UNK
     Route: 042
     Dates: start: 20200508, end: 20200513
  25. METAMIZOLE [Concomitant]
     Active Substance: METAMIZOLE
     Indication: CYTOKINE RELEASE SYNDROME
     Dosage: UNK, AS NEEDED (PRN)
     Route: 048
     Dates: start: 202005, end: 20200509
  26. KETOROLAC [Concomitant]
     Active Substance: KETOROLAC TROMETHAMINE
     Indication: CYTOKINE RELEASE SYNDROME
     Dosage: UNK, AS NEEDED (PRN)
     Route: 042
     Dates: start: 202005, end: 20200509
  27. TOCILIZUMAB. [Concomitant]
     Active Substance: TOCILIZUMAB
     Indication: CYTOKINE RELEASE SYNDROME
     Dosage: UNK, ONCE
     Route: 042
     Dates: start: 20200509, end: 20200509
  28. ONDANSETRON [Concomitant]
     Active Substance: ONDANSETRON
     Dosage: UNK, AS NEEDED (PRN)
  29. VALACICLOVIR [Concomitant]
     Active Substance: VALACYCLOVIR HYDROCHLORIDE
     Indication: ANTIVIRAL PROPHYLAXIS
     Dosage: 500 MG, DAILY (1 IN 1 D)
     Route: 048
  30. POTASSIUM [Concomitant]
     Active Substance: POTASSIUM
     Indication: PROPHYLAXIS
     Dosage: 3 TAB, 1 IN 8 HR
     Route: 048
     Dates: start: 20200507, end: 20200513

REACTIONS (1)
  - Subdural haematoma [Recovered/Resolved]

NARRATIVE: CASE EVENT DATE: 20200608
